FAERS Safety Report 9247518 (Version 2)
Quarter: 2013Q2

REPORT INFORMATION
  Report Type: Spontaneous
  Country: US (occurrence: US)
  Receive Date: 20130423
  Receipt Date: 20130507
  Transmission Date: 20140414
  Serious: Yes (Other)
  Sender: FDA-Public Use
  Company Number: PHEH2013US008756

PATIENT
  Age: 95 Year
  Sex: Male
  Weight: 58.96 kg

DRUGS (9)
  1. EXELON PATCH [Suspect]
     Indication: DEMENTIA
     Dosage: 9.5 MG, DAILY
     Route: 062
  2. EXELON PATCH [Suspect]
     Dosage: 13.3 MG, DAILY
     Route: 062
  3. EXELON PATCH [Suspect]
     Dosage: 9.5 MG, DAILY
     Route: 062
  4. EXELON PATCH [Suspect]
     Dosage: 13.3 MG, DAILY
     Route: 062
     Dates: start: 20130111, end: 20130128
  5. VIT D [Concomitant]
     Indication: BONE DISORDER
     Dosage: 1000 IU, QD
     Route: 048
     Dates: start: 20130217
  6. TOPROL XL [Concomitant]
     Dosage: 50 MG, UNK
     Route: 048
     Dates: start: 20130217
  7. MIRTAZAPINE [Concomitant]
     Indication: INSOMNIA
     Dosage: 7.5 MG, UNK
     Route: 048
     Dates: start: 20130217
  8. FLUTICASONE [Concomitant]
     Indication: RHINITIS ALLERGIC
     Dosage: UNK UKN, UNK
     Route: 045
     Dates: start: 20121228
  9. OMEPRAZOLE [Concomitant]
     Indication: GASTROOESOPHAGEAL REFLUX DISEASE
     Dosage: 20 MG, QD
     Route: 048
     Dates: start: 20110418

REACTIONS (2)
  - Hallucination [Recovered/Resolved]
  - Syncope [Recovered/Resolved]
